FAERS Safety Report 19666985 (Version 2)
Quarter: 2021Q3

REPORT INFORMATION
  Report Type: Spontaneous
  Country: GB (occurrence: GB)
  Receive Date: 20210806
  Receipt Date: 20210816
  Transmission Date: 20211014
  Serious: Yes (Other)
  Sender: FDA-Public Use
  Company Number: GB-MYLANLABS-2021M1045488

PATIENT
  Age: 62 Year
  Sex: Male
  Weight: 102 kg

DRUGS (15)
  1. RAMIPRIL. [Concomitant]
     Active Substance: RAMIPRIL
     Dosage: 1.25 MILLIGRAM, QD (AT NIGHT)
     Dates: start: 20210614
  2. SUKKARTO [Concomitant]
     Active Substance: METFORMIN HYDROCHLORIDE
     Dosage: 1000 MILLIGRAM
  3. FLECAINIDE [Concomitant]
     Active Substance: FLECAINIDE
     Dosage: 100 MILLIGRAM, BID
     Dates: start: 20210614
  4. DIAZEPAM. [Concomitant]
     Active Substance: DIAZEPAM
     Dosage: 1 MILLIGRAM, QD
     Dates: start: 20210713
  5. DILTIAZEM. [Suspect]
     Active Substance: DILTIAZEM
     Indication: HAEMORRHOIDS
     Dosage: 90 MILLIGRAM
     Route: 048
     Dates: start: 20210712
  6. GLYCERYL TRINITRATE [Concomitant]
     Active Substance: NITROGLYCERIN
     Dosage: 400 MICROGRAM (400MICROGRAMS/DOSE PUMP 1 ? 2 SPRAYS  )
     Route: 060
     Dates: start: 20210713
  7. METFORMIN [Concomitant]
     Active Substance: METFORMIN HYDROCHLORIDE
     Dosage: 1 DOSAGE FORM, BID
     Dates: start: 20210617
  8. TOSTRAN [Concomitant]
     Active Substance: TESTOSTERONE
     Dosage: UNK (AS DIRECTED)
     Dates: start: 20210614
  9. RIVAROXABAN [Concomitant]
     Active Substance: RIVAROXABAN
     Dosage: 20 MILLIGRAM, QD
     Dates: start: 20210614
  10. ISOSORBIDE MONONITRATE. [Concomitant]
     Active Substance: ISOSORBIDE MONONITRATE
     Dosage: 10 MILLIGRAM, BID (1 IN THE MORNING AND 1 AT 2PM)
     Dates: start: 20210713
  11. SCHERIPROCT                        /01814801/ [Concomitant]
     Dosage: 1 DOSAGE FORM, QD (WHEN REQUIRED)
     Dates: start: 20210505
  12. ATORVASTATIN [Concomitant]
     Active Substance: ATORVASTATIN
     Dosage: 20 MILLIGRAM, QD
     Dates: start: 20210614
  13. FLUCLOXACILLIN [Concomitant]
     Active Substance: FLUCLOXACILLIN
     Dosage: 500 MILLIGRAM, QID
     Dates: start: 20210505
  14. PIOGLITAZONE. [Concomitant]
     Active Substance: PIOGLITAZONE
     Dosage: 15 MILLIGRAM, QD
     Dates: start: 20210614
  15. FERROUS FUMARATE [Concomitant]
     Active Substance: FERROUS FUMARATE
     Dosage: 210 MILLIGRAM, QD
     Dates: start: 20210526

REACTIONS (2)
  - Confusional state [Recovered/Resolved]
  - Off label use [Unknown]

NARRATIVE: CASE EVENT DATE: 20210712
